FAERS Safety Report 7618100-1 (Version None)
Quarter: 2011Q3

REPORT INFORMATION
  Report Type: 
  Country: None (occurrence: None)
  Receive Date: 20110718
  Receipt Date: 20110706
  Transmission Date: 20111222
  Serious: No
  Sender: FDA-Public Use
  Company Number: US-ROXANE LABORATORIES, INC.-2011-RO-00983RO

PATIENT
  Age: 72 Year
  Sex: Female

DRUGS (5)
  1. MULTI-VITAMIN [Concomitant]
  2. EXEMESTANE [Suspect]
     Indication: BREAST CANCER
     Dosage: 25 MG
     Route: 048
  3. ASCORBIC ACID [Concomitant]
  4. LORAZEPAM [Concomitant]
  5. SYNTHROID [Concomitant]

REACTIONS (7)
  - ABDOMINAL DISTENSION [None]
  - HEADACHE [None]
  - BREAST PAIN [None]
  - WEIGHT INCREASED [None]
  - PAIN IN EXTREMITY [None]
  - ASTHENIA [None]
  - MICTURITION URGENCY [None]
